FAERS Safety Report 5255051-4 (Version None)
Quarter: 2007Q1

REPORT INFORMATION
  Report Type: 
  Country: None (occurrence: None)
  Receive Date: 20070305
  Receipt Date: 20070227
  Transmission Date: 20070707
  Serious: Yes (Hospitalization)
  Sender: FDA-Public Use
  Company Number: DE-BRISTOL-MYERS SQUIBB COMPANY-13697016

PATIENT
  Age: 54 Year
  Sex: Male

DRUGS (1)
  1. MITOMYCIN [Suspect]
     Indication: BLADDER PAPILLOMA
     Route: 043
     Dates: start: 20061213

REACTIONS (1)
  - CYSTITIS NONINFECTIVE [None]
